FAERS Safety Report 25353460 (Version 1)
Quarter: 2025Q2

REPORT INFORMATION
  Report Type: Spontaneous
  Country: DE (occurrence: DE)
  Receive Date: 20250523
  Receipt Date: 20250523
  Transmission Date: 20250716
  Serious: Yes (Hospitalization)
  Sender: ELI LILLY AND COMPANY
  Company Number: DE-ELI_LILLY_AND_COMPANY-DE202505014478

PATIENT
  Age: 47 Year
  Sex: Male
  Weight: 87 kg

DRUGS (4)
  1. LEBRIKIZUMAB [Suspect]
     Active Substance: LEBRIKIZUMAB
     Indication: Dermatitis atopic
     Route: 058
     Dates: start: 20240719
  2. OFLOXACIN [Concomitant]
     Active Substance: OFLOXACIN
     Indication: Product used for unknown indication
     Dosage: UNK UNK, BID (1-0-1)
     Route: 047
  3. ACYCLOVIR SODIUM [Concomitant]
     Active Substance: ACYCLOVIR SODIUM
     Indication: Product used for unknown indication
     Dosage: 400 MG, BID (1-0-1)
     Route: 065
  4. DEXAMETHASONE [Concomitant]
     Active Substance: DEXAMETHASONE
     Indication: Product used for unknown indication
     Dosage: UNK UNK, BID (1-0-1)
     Route: 047

REACTIONS (2)
  - Pulmonary sarcoidosis [Recovering/Resolving]
  - Sarcoidosis of lymph node [Recovering/Resolving]

NARRATIVE: CASE EVENT DATE: 20250122
